FAERS Safety Report 8675595 (Version 3)
Quarter: 2013Q1

REPORT INFORMATION
  Report Type: Report from Study
  Country: US (occurrence: US)
  Receive Date: 20120720
  Receipt Date: 20130207
  Transmission Date: 20140127
  Serious: Yes (Hospitalization, Other)
  Sender: FDA-Public Use
  Company Number: US-ROCHE-1090134

PATIENT
  Sex: Male

DRUGS (12)
  1. SOMATROPIN [Suspect]
     Indication: GROWTH HORMONE DEFICIENCY
     Route: 058
  2. SOMATROPIN [Suspect]
     Route: 058
     Dates: start: 201002
  3. CALCITRIOL [Concomitant]
     Route: 065
  4. FERROUS SULFATE [Concomitant]
     Route: 048
  5. MIRALAX [Concomitant]
     Route: 048
  6. FLUCONAZOLE [Concomitant]
     Route: 042
  7. NYSTATIN [Concomitant]
     Dosage: DOSE: 500 MM UNIT
     Route: 061
  8. PEPCID [Concomitant]
     Route: 048
  9. POLY VI SOL WITH IRON [Concomitant]
     Route: 065
  10. PROCRIT [Concomitant]
     Dosage: DOSE: 3000 UNITS
     Route: 065
  11. RENVELA [Concomitant]
     Route: 048
  12. SODIUM BICARBONATE [Concomitant]
     Route: 048

REACTIONS (4)
  - Infection [Unknown]
  - Pyrexia [Recovering/Resolving]
  - Fungaemia [Recovering/Resolving]
  - Renal failure chronic [Unknown]
